FAERS Safety Report 22164285 (Version 4)
Quarter: 2023Q2

REPORT INFORMATION
  Report Type: Spontaneous
  Country: GB (occurrence: GB)
  Receive Date: 20230403
  Receipt Date: 20230614
  Transmission Date: 20230721
  Serious: Yes (Hospitalization, Other)
  Sender: FDA-Public Use
  Company Number: GB-BAXTER-2023BAX014578

PATIENT
  Age: 12 Year
  Sex: Male
  Weight: 34 kg

DRUGS (52)
  1. WATER FOR INJECTION [Suspect]
     Active Substance: WATER
     Indication: Parenteral nutrition
     Dosage: COMPOUNDED PN 5 NIGHTS A WEEK
     Route: 050
  2. WATER FOR INJECTION [Suspect]
     Active Substance: WATER
     Indication: Product used for unknown indication
     Dosage: COMPOUNDED PN 5 NIGHTS A WEEK
     Route: 050
  3. WATER FOR INJECTION [Suspect]
     Active Substance: WATER
     Dosage: COMPOUNDED PN 5 NIGHTS A WEEK
     Route: 050
  4. ONDANSETRON [Suspect]
     Active Substance: ONDANSETRON
     Dosage: 3.5 MG TDS, PRN
     Route: 050
     Dates: start: 20230117
  5. CALCIUM CHLORIDE [Suspect]
     Active Substance: CALCIUM CHLORIDE
     Indication: Parenteral nutrition
     Dosage: COMPOUNDED PN 5 NIGHTS A WEEK
     Route: 050
  6. CALCIUM CHLORIDE [Suspect]
     Active Substance: CALCIUM CHLORIDE
     Indication: Product used for unknown indication
     Dosage: COMPOUNDED PN 5 NIGHTS A WEEK
     Route: 050
  7. CALCIUM CHLORIDE [Suspect]
     Active Substance: CALCIUM CHLORIDE
     Dosage: COMPOUNDED PN 5 NIGHTS A WEEK
     Route: 050
  8. DEXTROSE [Suspect]
     Active Substance: DEXTROSE\DEXTROSE MONOHYDRATE
     Indication: Parenteral nutrition
     Dosage: COMPOUNDED PN 5 NIGHTS A WEEK
     Route: 050
  9. DEXTROSE [Suspect]
     Active Substance: DEXTROSE\DEXTROSE MONOHYDRATE
     Indication: Product used for unknown indication
     Dosage: COMPOUNDED PN 5 NIGHTS A WEEK
     Route: 050
  10. DEXTROSE [Suspect]
     Active Substance: DEXTROSE\DEXTROSE MONOHYDRATE
     Dosage: COMPOUNDED PN 5 NIGHTS A WEEK
     Route: 050
  11. DEXTROSE [Suspect]
     Active Substance: DEXTROSE\DEXTROSE MONOHYDRATE
     Dosage: COMPOUNDED PN 5 NIGHTS A WEEK
     Route: 050
  12. MAGNESIUM SULFATE [Suspect]
     Active Substance: MAGNESIUM SULFATE
     Indication: Parenteral nutrition
     Dosage: (BAG) COMPOUNDED PN 5 NIGHTS A WEEK
     Route: 050
  13. MAGNESIUM SULFATE [Suspect]
     Active Substance: MAGNESIUM SULFATE
     Indication: Product used for unknown indication
     Dosage: COMPOUNDED PN 5 NIGHTS A WEEK
     Route: 050
  14. MAGNESIUM SULFATE [Suspect]
     Active Substance: MAGNESIUM SULFATE
     Dosage: COMPOUNDED PN 5 NIGHTS A WEEK
     Route: 050
  15. POTASSIUM CHLORIDE [Suspect]
     Active Substance: POTASSIUM CHLORIDE
     Indication: Parenteral nutrition
     Dosage: COMPOUNDED PN 5 NIGHTS A WEEK
     Route: 050
  16. POTASSIUM CHLORIDE [Suspect]
     Active Substance: POTASSIUM CHLORIDE
     Indication: Product used for unknown indication
     Dosage: COMPOUNDED PN 5 NIGHTS A WEEK
     Route: 050
  17. POTASSIUM CHLORIDE [Suspect]
     Active Substance: POTASSIUM CHLORIDE
     Dosage: COMPOUNDED PN 5 NIGHTS A WEEK
     Route: 050
  18. POTASSIUM CHLORIDE [Suspect]
     Active Substance: POTASSIUM CHLORIDE
     Dosage: TRIALLED PN THAT CONTAINED ONLY 0.1MMOL/KG/DAY CALCIUM (HAD BEEN ON 0.4MMOL/KG IN COMPOUNDED PN (BAX
     Route: 065
  19. SODIUM CHLORIDE [Suspect]
     Active Substance: SODIUM CHLORIDE
     Indication: Parenteral nutrition
     Dosage: COMPOUNDED PN 5 NIGHTS A WEEK
     Route: 050
  20. SODIUM CHLORIDE [Suspect]
     Active Substance: SODIUM CHLORIDE
     Indication: Product used for unknown indication
     Dosage: COMPOUNDED PN 5 NIGHTS A WEEK
     Route: 050
  21. SODIUM CHLORIDE [Suspect]
     Active Substance: SODIUM CHLORIDE
     Dosage: COMPOUNDED PN 5 NIGHTS A WEEK
     Route: 050
  22. SODIUM CHLORIDE [Suspect]
     Active Substance: SODIUM CHLORIDE
     Dosage: COMPOUNDED PN 5 NIGHTS A WEEK
     Route: 050
  23. SODIUM GLYCEROPHOSPHATE [Suspect]
     Active Substance: SODIUM GLYCEROPHOSPHATE
     Indication: Parenteral nutrition
     Dosage: COMPOUNDED PN 5 NIGHTS A WEEK
     Route: 050
  24. SODIUM GLYCEROPHOSPHATE [Suspect]
     Active Substance: SODIUM GLYCEROPHOSPHATE
     Indication: Product used for unknown indication
     Dosage: COMPOUNDED PN 5 NIGHTS A WEEK
     Route: 050
  25. SODIUM GLYCEROPHOSPHATE [Suspect]
     Active Substance: SODIUM GLYCEROPHOSPHATE
     Dosage: COMPOUNDED PN 5 NIGHTS A WEEK
     Route: 050
  26. WATER [Suspect]
     Active Substance: WATER
     Indication: Parenteral nutrition
     Dosage: COMPOUNDED PN 5 NIGHTS A WEEK
     Route: 050
  27. WATER [Suspect]
     Active Substance: WATER
     Indication: Product used for unknown indication
     Dosage: COMPOUNDED PN 5 NIGHTS A WEEK
     Route: 050
  28. WATER [Suspect]
     Active Substance: WATER
     Dosage: COMPOUNDED PN 5 NIGHTS A WEEK
     Route: 050
  29. SMOFLIPID [Suspect]
     Active Substance: FISH OIL\MEDIUM-CHAIN TRIGLYCERIDES\OLIVE OIL\SOYBEAN OIL
     Indication: Parenteral nutrition
     Dosage: COMPOUNDED PN 5 NIGHTS A WEEK
     Route: 050
  30. SMOFLIPID [Suspect]
     Active Substance: FISH OIL\MEDIUM-CHAIN TRIGLYCERIDES\OLIVE OIL\SOYBEAN OIL
     Indication: Product used for unknown indication
     Dosage: COMPOUNDED PN 5 NIGHTS A WEEK
     Route: 050
  31. SMOFLIPID [Suspect]
     Active Substance: FISH OIL\MEDIUM-CHAIN TRIGLYCERIDES\OLIVE OIL\SOYBEAN OIL
     Dosage: COMPOUNDED PN 5 NIGHTS A WEEK
     Route: 050
  32. AMINO ACIDS, SOURCE UNSPECIFIED [Suspect]
     Active Substance: AMINO ACIDS, SOURCE UNSPECIFIED
     Indication: Parenteral nutrition
     Dosage: 25 (COMPOUNDED PN 5 NIGHTS A WEEK)
     Route: 050
  33. AMINO ACIDS, SOURCE UNSPECIFIED [Suspect]
     Active Substance: AMINO ACIDS, SOURCE UNSPECIFIED
     Indication: Product used for unknown indication
     Dosage: 25 (COMPOUNDED PN 5 NIGHTS A WEEK)
     Route: 050
  34. AMINO ACIDS, SOURCE UNSPECIFIED [Suspect]
     Active Substance: AMINO ACIDS, SOURCE UNSPECIFIED
     Dosage: 25 (COMPOUNDED PN 5 NIGHTS A WEEK)
     Route: 050
  35. AMINO ACIDS, SOURCE UNSPECIFIED [Suspect]
     Active Substance: AMINO ACIDS, SOURCE UNSPECIFIED
     Dosage: 25 (COMPOUNDED PN 5 NIGHTS A WEEK); ;
     Route: 065
  36. SODIUM ACETATE [Suspect]
     Active Substance: SODIUM ACETATE
     Indication: Parenteral nutrition
     Dosage: 20 HOURS A DAY (BAXTER COMPOUNDED PN)
     Route: 065
  37. CALCIUM CHLORIDE HEXAHYDRATE [Suspect]
     Active Substance: CALCIUM CHLORIDE HEXAHYDRATE
     Indication: Parenteral nutrition
     Dosage: 20 HOURS A DAY (BAXTER COMPOUNDED PN)
     Route: 065
  38. ERGOCALCIFEROL\PHYTONADIONE\RETINOL\TOCOPHEROL [Suspect]
     Active Substance: ERGOCALCIFEROL\PHYTONADIONE\RETINOL\TOCOPHEROL
     Indication: Parenteral nutrition
     Dosage: COMPOUNDED PN 5 NIGHTS A WEEK
     Route: 050
  39. ERGOCALCIFEROL\PHYTONADIONE\RETINOL\TOCOPHEROL [Suspect]
     Active Substance: ERGOCALCIFEROL\PHYTONADIONE\RETINOL\TOCOPHEROL
     Indication: Product used for unknown indication
     Dosage: COMPOUNDED PN 5 NIGHTS A WEEK
     Route: 050
  40. ERGOCALCIFEROL\PHYTONADIONE\RETINOL\TOCOPHEROL [Suspect]
     Active Substance: ERGOCALCIFEROL\PHYTONADIONE\RETINOL\TOCOPHEROL
     Dosage: COMPOUNDED PN 5 NIGHTS A WEEK
     Route: 050
  41. PEDITRACE [Suspect]
     Active Substance: CUPRIC CHLORIDE\MANGANESE CHLORIDE\POTASSIUM IODIDE\SODIUM FLUORIDE\SODIUM SELENITE\ZINC CHLORIDE
     Indication: Parenteral nutrition
     Dosage: COMPOUNDED PN 5 NIGHTS A WEEK
     Route: 050
  42. PEDITRACE [Suspect]
     Active Substance: CUPRIC CHLORIDE\MANGANESE CHLORIDE\POTASSIUM IODIDE\SODIUM FLUORIDE\SODIUM SELENITE\ZINC CHLORIDE
     Indication: Product used for unknown indication
     Dosage: COMPOUNDED PN 5 NIGHTS A WEEK
     Route: 050
  43. PEDITRACE [Suspect]
     Active Substance: CUPRIC CHLORIDE\MANGANESE CHLORIDE\POTASSIUM IODIDE\SODIUM FLUORIDE\SODIUM SELENITE\ZINC CHLORIDE
     Dosage: COMPOUNDED PN 5 NIGHTS A WEEK
     Route: 050
  44. VITAMINS [Suspect]
     Active Substance: VITAMINS
     Indication: Parenteral nutrition
     Dosage: COMPOUNDED PN 5 NIGHTS A WEEK
     Route: 050
  45. VITAMINS [Suspect]
     Active Substance: VITAMINS
     Indication: Product used for unknown indication
     Dosage: COMPOUNDED PN 5 NIGHTS A WEEK
     Route: 050
  46. VITAMINS [Suspect]
     Active Substance: VITAMINS
     Dosage: COMPOUNDED PN 5 NIGHTS A WEEK
     Route: 050
  47. AMINO ACIDS\DEXTROSE\ELECTROLYTES NOS [Suspect]
     Active Substance: AMINO ACIDS\DEXTROSE\ELECTROLYTES NOS
     Indication: Product used for unknown indication
     Dosage: 1650 ML OVER 12 HOURS 2 NIGHTS
     Route: 050
     Dates: end: 20230227
  48. AMINO ACIDS\DEXTROSE\ELECTROLYTES NOS [Suspect]
     Active Substance: AMINO ACIDS\DEXTROSE\ELECTROLYTES NOS
     Dosage: TRIALLED PN THAT CONTAINED ONLY 0.1MMOL/KG/DAY CALCIUM (HAD BEEN ON 0.4MMOL/KG IN COMPOUNDED PN
     Route: 065
  49. AMINO ACIDS\DEXTROSE\ELECTROLYTES NOS [Suspect]
     Active Substance: AMINO ACIDS\DEXTROSE\ELECTROLYTES NOS
     Indication: Parenteral nutrition
     Dosage: PN TWICE A WEEK (COMPOUNDED PN USED 5 X PER WEEK) 20 HOURS A DAY
     Route: 041
     Dates: start: 20220117, end: 20230224
  50. PANTOPRAZOLE [Suspect]
     Active Substance: PANTOPRAZOLE
     Indication: Gastrooesophageal reflux disease
     Dosage: 10 MG, OD
     Route: 050
     Dates: start: 20230117, end: 20230301
  51. ESOMEPRAZOLE [Concomitant]
     Active Substance: ESOMEPRAZOLE
     Indication: Gastrooesophageal reflux disease
     Dosage: 20 MG, OD
     Route: 050
     Dates: start: 20230302
  52. ASCORBIC ACID\VITAMIN B COMPLEX [Concomitant]
     Active Substance: ASCORBIC ACID\VITAMIN B COMPLEX
     Indication: Product used for unknown indication
     Route: 065

REACTIONS (16)
  - Blood urea increased [Recovered/Resolved]
  - Electrolyte imbalance [Unknown]
  - Blood potassium decreased [Unknown]
  - Blood magnesium decreased [Unknown]
  - Blood phosphorus decreased [Unknown]
  - Hypernatraemia [Recovered/Resolved]
  - Hypercalcaemia [Recovered/Resolved]
  - Drug intolerance [Unknown]
  - Emotional distress [Recovered/Resolved]
  - Klebsiella test positive [Unknown]
  - Blood creatinine increased [Unknown]
  - Dehydration [Unknown]
  - Cholelithiasis [Unknown]
  - Blood triglycerides increased [Unknown]
  - Alanine aminotransferase increased [Recovered/Resolved]
  - Pain [Recovered/Resolved]

NARRATIVE: CASE EVENT DATE: 20230111
